FAERS Safety Report 8508811 (Version 4)
Quarter: 2013Q2

REPORT INFORMATION
  Report Type: Spontaneous
  Country: US (occurrence: US)
  Receive Date: 20120412
  Receipt Date: 20130604
  Transmission Date: 20140414
  Serious: No
  Sender: FDA-Public Use
  Company Number: US-ASTRAZENECA-2012SE08525

PATIENT
  Age: 43 Year
  Sex: Male
  Weight: 122.5 kg

DRUGS (11)
  1. NEXIUM [Suspect]
     Indication: GASTROOESOPHAGEAL REFLUX DISEASE
     Route: 048
  2. CLARITIN [Concomitant]
  3. RANITIDINE [Concomitant]
  4. MORPHINE [Concomitant]
  5. NORCO [Concomitant]
     Indication: PAIN
  6. DIPHENHYDRAMINE [Concomitant]
  7. ROBAXIN [Concomitant]
  8. LIDODERM [Concomitant]
  9. AMITRIPTYLINE [Concomitant]
  10. SIMVASTATIN [Concomitant]
  11. LEXAPRO [Concomitant]

REACTIONS (12)
  - Gastrooesophageal reflux disease [Unknown]
  - Sleep disorder due to general medical condition, insomnia type [Unknown]
  - Nerve injury [Unknown]
  - Gastric disorder [Unknown]
  - Memory impairment [Unknown]
  - Hyperlipidaemia [Unknown]
  - Obesity [Unknown]
  - Pain [Unknown]
  - Depression [Unknown]
  - Insomnia [Unknown]
  - Malaise [Unknown]
  - Drug dose omission [Unknown]
